FAERS Safety Report 5168884-X (Version None)
Quarter: 2006Q4

REPORT INFORMATION
  Report Type: 
  Country: None (occurrence: None)
  Receive Date: 20061201
  Receipt Date: 20061122
  Transmission Date: 20070319
  Serious: Yes (Other)
  Sender: FDA-Public Use
  Company Number: 2006144577

PATIENT
  Age: 59 Year
  Sex: Male

DRUGS (3)
  1. NORVASC [Suspect]
  2. LABETALOL HCL [Suspect]
  3. LISINOPRIL [Concomitant]

REACTIONS (1)
  - CEREBROVASCULAR ACCIDENT [None]
